FAERS Safety Report 10555446 (Version 1)
Quarter: 2014Q4

REPORT INFORMATION
  Report Type: Spontaneous
  Country: MG (occurrence: MG)
  Receive Date: 20141030
  Receipt Date: 20141030
  Transmission Date: 20150529
  Serious: Yes (Death, Hospitalization)
  Sender: FDA-Public Use
  Company Number: MG-BAYER-2014-155762

PATIENT
  Age: 45 Year
  Sex: Male

DRUGS (1)
  1. CIPROFLOXACIN. [Suspect]
     Active Substance: CIPROFLOXACIN

REACTIONS (3)
  - Sepsis [Fatal]
  - Therapeutic product ineffective for unapproved indication [None]
  - Hepatic failure [Fatal]

NARRATIVE: CASE EVENT DATE: 201305
